FAERS Safety Report 14895888 (Version 1)
Quarter: 2018Q2

REPORT INFORMATION
  Report Type: Spontaneous
  Country: US (occurrence: US)
  Receive Date: 20180426
  Receipt Date: 20180426
  Transmission Date: 20180711
  Serious: Yes (Disabling, Other)
  Sender: FDA-Public Use
  Company Number: None

PATIENT
  Age: 36 Year
  Sex: Female
  Weight: 195 kg

DRUGS (2)
  1. NAPROSYN [Concomitant]
     Active Substance: NAPROXEN
  2. BACTRIM DS [Suspect]
     Active Substance: SULFAMETHOXAZOLE\TRIMETHOPRIM
     Indication: ABSCESS
     Dosage: ?          QUANTITY:2 TABLET(S);?
     Route: 048
     Dates: start: 20180419, end: 20180426

REACTIONS (2)
  - Back pain [None]
  - Ageusia [None]

NARRATIVE: CASE EVENT DATE: 20180423
